FAERS Safety Report 12757746 (Version 1)
Quarter: 2016Q3

REPORT INFORMATION
  Report Type: Report from Study
  Country: US (occurrence: US)
  Receive Date: 20160919
  Receipt Date: 20160919
  Transmission Date: 20161109
  Serious: Yes (Life-Threatening, Other)
  Sender: FDA-Public Use
  Company Number: US-ELI_LILLY_AND_COMPANY-US201609004323

PATIENT
  Sex: Male

DRUGS (3)
  1. OLANZAPINE. [Suspect]
     Active Substance: OLANZAPINE
     Indication: PRODUCT USED FOR UNKNOWN INDICATION
     Dosage: 5 MG, UNKNOWN
     Route: 065
  2. EFFEXOR [Suspect]
     Active Substance: VENLAFAXINE HYDROCHLORIDE
     Indication: PRODUCT USED FOR UNKNOWN INDICATION
     Dosage: UNK, UNKNOWN
     Route: 065
  3. OLANZAPINE. [Suspect]
     Active Substance: OLANZAPINE
     Dosage: 10 MG, UNKNOWN
     Route: 065

REACTIONS (17)
  - Extrapyramidal disorder [Unknown]
  - Tardive dyskinesia [Unknown]
  - Serotonin syndrome [Unknown]
  - Suicidal ideation [Unknown]
  - Seizure [Unknown]
  - Respiratory tract infection [Unknown]
  - Neuroleptic malignant syndrome [Unknown]
  - Gynaecomastia [Unknown]
  - Blood prolactin increased [Unknown]
  - Osteoporosis [Unknown]
  - Sexual dysfunction [Unknown]
  - Arrhythmia [Unknown]
  - Priapism [Unknown]
  - Psychomotor skills impaired [Unknown]
  - Cognitive disorder [Unknown]
  - Dysphagia [Unknown]
  - Gastrointestinal haemorrhage [Unknown]
